FAERS Safety Report 8951343 (Version 1)
Quarter: 2012Q4

REPORT INFORMATION
  Report Type: 
  Country: CH (occurrence: CH)
  Receive Date: 20121207
  Receipt Date: 20121207
  Transmission Date: 20130627
  Serious: Yes (Hospitalization)
  Sender: FDA-Public Use
  Company Number: CH-SANOFI-AVENTIS-2012SA087404

PATIENT
  Age: 78 Year
  Sex: Male
  Weight: 73 kg

DRUGS (6)
  1. MULTAQ [Suspect]
     Indication: ATRIAL FIBRILLATION
     Route: 048
     Dates: start: 2010, end: 201210
  2. MARCOUMAR [Concomitant]
     Indication: ATRIAL FIBRILLATION
     Dates: start: 2010
  3. AMLODIPINE [Concomitant]
     Indication: ESSENTIAL HYPERTENSION
     Route: 048
  4. POTASSIUM CHLORIDE [Concomitant]
     Indication: HYPOKALAEMIA
     Route: 048
  5. SPIRIVA [Concomitant]
     Indication: CHRONIC OBSTRUCTIVE LUNG DISEASE
     Route: 055
  6. PULMICORT [Concomitant]
     Indication: CHRONIC OBSTRUCTIVE PULMONARY DISEASE
     Route: 055

REACTIONS (1)
  - Pneumonitis [Not Recovered/Not Resolved]
